FAERS Safety Report 21241678 (Version 1)
Quarter: 2022Q3

REPORT INFORMATION
  Report Type: Report from Study
  Country: US (occurrence: US)
  Receive Date: 20220823
  Receipt Date: 20220823
  Transmission Date: 20221026
  Serious: Yes (Hospitalization, Other)
  Sender: FDA-Public Use
  Company Number: US-BRISTOL-MYERS SQUIBB COMPANY-2022-090875

PATIENT
  Sex: Female

DRUGS (2)
  1. ORENCIA [Suspect]
     Active Substance: ABATACEPT
     Indication: Product used for unknown indication
     Route: 042
     Dates: start: 20220815
  2. ORENCIA [Suspect]
     Active Substance: ABATACEPT

REACTIONS (1)
  - Vein rupture [Unknown]

NARRATIVE: CASE EVENT DATE: 20220815
